APPROVED DRUG PRODUCT: CLORAZEPATE DIPOTASSIUM
Active Ingredient: CLORAZEPATE DIPOTASSIUM
Strength: 7.5MG
Dosage Form/Route: TABLET;ORAL
Application: A072331 | Product #001
Applicant: PUREPAC PHARMACEUTICAL CO
Approved: Aug 8, 1988 | RLD: No | RS: No | Type: DISCN